FAERS Safety Report 9891321 (Version 1)
Quarter: 2014Q1

REPORT INFORMATION
  Report Type: Spontaneous
  Country: US (occurrence: US)
  Receive Date: 20140212
  Receipt Date: 20140212
  Transmission Date: 20141002
  Serious: No
  Sender: FDA-Public Use
  Company Number: US-ABBVIE-13P-163-1118284-00

PATIENT
  Age: 36 Year
  Sex: Male
  Weight: 71.73 kg

DRUGS (7)
  1. NORVIR [Suspect]
     Indication: HIV INFECTION
     Dates: start: 201305
  2. ISENTRESS [Concomitant]
     Indication: HIV INFECTION
  3. PREZISTA [Concomitant]
     Indication: HIV INFECTION
  4. TRICOR [Concomitant]
     Indication: BLOOD CHOLESTEROL INCREASED
  5. ANDROGEL [Concomitant]
     Indication: BLOOD TESTOSTERONE DECREASED
  6. ZOLOFT [Concomitant]
     Indication: DEPRESSION
  7. OTHER HIV MEDS [Concomitant]
     Indication: PRODUCT USED FOR UNKNOWN INDICATION

REACTIONS (1)
  - Palpitations [Not Recovered/Not Resolved]
